FAERS Safety Report 15108306 (Version 1)
Quarter: 2018Q3

REPORT INFORMATION
  Report Type: Report from Study
  Country: PL (occurrence: PL)
  Receive Date: 20180705
  Receipt Date: 20180705
  Transmission Date: 20181010
  Serious: Yes (Life-Threatening, Hospitalization)
  Sender: FDA-Public Use
  Company Number: PL-ROCHE-1774526

PATIENT
  Age: 36 Year
  Sex: Male
  Weight: 104 kg

DRUGS (55)
  1. EMICIZUMAB. [Suspect]
     Active Substance: EMICIZUMAB
     Indication: HAEMOPHILIA A WITH ANTI FACTOR VIII
     Dosage: HIS MOST RECENT DOSE OF EMICIZUMAB WAS 1.07 ML.
     Route: 058
     Dates: start: 20160421, end: 20160609
  2. NOVOSEVEN [Concomitant]
     Active Substance: COAGULATION FACTOR VIIA RECOMBINANT HUMAN
     Indication: CATHETER PLACEMENT
     Route: 042
     Dates: start: 20160611, end: 20160611
  3. GLUCOSE [Concomitant]
     Active Substance: DEXTROSE
     Indication: NUTRITIONAL SUPPLEMENTATION
     Dosage: EVERY DAY
     Route: 042
     Dates: start: 20160610, end: 20160611
  4. FUROSEMIDE. [Concomitant]
     Active Substance: FUROSEMIDE
     Indication: RENAL FAILURE
     Dosage: AMPULE
     Route: 042
     Dates: start: 20160611, end: 20160613
  5. CLEMASTIN [Concomitant]
     Active Substance: CLEMASTINE
     Indication: PREMEDICATION
     Dosage: 1 AMPULE, EVERY DAY
     Route: 042
     Dates: start: 20160613, end: 20160614
  6. ENCORTON [Concomitant]
     Active Substance: PREDNISONE
     Dosage: EVERY DAY
     Route: 048
     Dates: start: 20160623, end: 20160623
  7. FOLIC ACID. [Concomitant]
     Active Substance: FOLIC ACID
     Indication: ANAEMIA
     Dosage: EVERY DAY
     Route: 048
     Dates: start: 20160622, end: 20160625
  8. FEIBA [Suspect]
     Active Substance: ANTI-INHIBITOR COAGULANT COMPLEX
     Dosage: 10000 UNITS
     Route: 042
     Dates: start: 20160609, end: 20160609
  9. DORETA [Concomitant]
     Active Substance: ACETAMINOPHEN\TRAMADOL HYDROCHLORIDE
     Dosage: INDICATION REPORTED AS PAIN DUE TO HAEMOPHILIC ARTHROPATHY?FREQUENCY: AS NEEDED
     Route: 048
     Dates: start: 20160514
  10. NOVOSEVEN [Concomitant]
     Active Substance: COAGULATION FACTOR VIIA RECOMBINANT HUMAN
     Route: 042
     Dates: start: 20160609, end: 20160609
  11. POTASSIUM CHLORIDE IN DEXTROSE [Concomitant]
     Active Substance: DEXTROSE\DEXTROSE MONOHYDRATE\POTASSIUM CHLORIDE
     Indication: NUTRITIONAL SUPPLEMENTATION
     Dosage: 10% GLUCOSE+1,5G POTASSIUM CHLORIDE
     Route: 042
     Dates: start: 20160610, end: 20160610
  12. NORMAL SALINE [Concomitant]
     Active Substance: SODIUM CHLORIDE
     Dosage: 0.9% NORMAL SALINE SOLUTION, EVERY DAY
     Route: 042
     Dates: start: 20160613, end: 20160613
  13. NORMAL SALINE [Concomitant]
     Active Substance: SODIUM CHLORIDE
     Route: 042
     Dates: start: 20160614, end: 20160614
  14. SOLU?MEDROL [Concomitant]
     Active Substance: METHYLPREDNISOLONE SODIUM SUCCINATE
     Indication: IMMUNOSUPPRESSION
     Dosage: EVERY DAY
     Route: 042
     Dates: start: 20160614, end: 20160615
  15. ENCORTON [Concomitant]
     Active Substance: PREDNISONE
     Indication: IMMUNOSUPPRESSION
     Dosage: EVERY DAY
     Route: 048
     Dates: start: 20160616, end: 20160620
  16. FOLIC ACID. [Concomitant]
     Active Substance: FOLIC ACID
     Dosage: EVERY DAY
     Route: 048
     Dates: start: 20160622, end: 20160622
  17. ALDAN (POLAND) [Concomitant]
     Indication: HYPERTENSION
     Dosage: EVERY DAY
     Route: 048
     Dates: start: 20160517, end: 20160610
  18. PERFALGAN [Concomitant]
     Active Substance: ACETAMINOPHEN
     Indication: ANALGESIC THERAPY
     Dosage: AS NEEDED
     Route: 042
     Dates: start: 20160610, end: 20160612
  19. PROCTOGLYVENOL [Concomitant]
     Indication: PROCTALGIA
     Dosage: DOSE UNIT REPORTED AS OTHER
     Route: 054
     Dates: start: 20160610, end: 20160613
  20. FUROSEMIDE. [Concomitant]
     Active Substance: FUROSEMIDE
     Dosage: 1 AMPULE
     Route: 042
     Dates: start: 20160616, end: 20160616
  21. FUROSEMIDE. [Concomitant]
     Active Substance: FUROSEMIDE
     Dosage: 1 AMPULE
     Route: 042
     Dates: start: 20160617, end: 20160619
  22. HYDROCORTISON [Concomitant]
     Active Substance: HYDROCORTISONE
     Indication: PREMEDICATION
     Dosage: 1 AMPULE, EVERY DAY
     Route: 042
     Dates: start: 20160613, end: 20160614
  23. HYDROCORTISON [Concomitant]
     Active Substance: HYDROCORTISONE
     Dosage: EVERY DAY
     Route: 048
     Dates: start: 20160614, end: 20160615
  24. LACIDOFIL [Concomitant]
     Active Substance: LACTOBACILLUS ACIDOPHILUS\LACTOBACILLUS RHAMNOSUS
     Dosage: INDICATION REPORTED AS REBUILD THE INTESTINAL FLORA
     Route: 048
     Dates: start: 20160616, end: 20160617
  25. KALIPOZ [Concomitant]
     Active Substance: POTASSIUM CHLORIDE
     Route: 048
     Dates: start: 20160616, end: 20160617
  26. RFVIIA [Suspect]
     Active Substance: COAGULATION FACTOR VIIA HUMAN
     Indication: ATYPICAL HAEMOLYTIC URAEMIC SYNDROME
     Route: 042
     Dates: start: 20160609, end: 20160609
  27. NORMAL SALINE [Concomitant]
     Active Substance: SODIUM CHLORIDE
     Dosage: EVERY DAY
     Route: 042
     Dates: start: 20160617, end: 20160620
  28. FUROSEMIDE. [Concomitant]
     Active Substance: FUROSEMIDE
     Route: 048
     Dates: start: 20160622, end: 20160622
  29. CLEMASTIN [Concomitant]
     Active Substance: CLEMASTINE
     Route: 048
     Dates: start: 20150614, end: 20150615
  30. KALIPOZ [Concomitant]
     Active Substance: POTASSIUM CHLORIDE
     Route: 048
     Dates: start: 20160617, end: 20160620
  31. FOLIC ACID. [Concomitant]
     Active Substance: FOLIC ACID
     Route: 048
     Dates: start: 20160621, end: 20160621
  32. FEIBA [Suspect]
     Active Substance: ANTI-INHIBITOR COAGULANT COMPLEX
     Indication: BACK PAIN
     Dosage: EVERY DAY, 10000 UNITS
     Route: 042
     Dates: start: 20160607, end: 20160607
  33. FEIBA [Suspect]
     Active Substance: ANTI-INHIBITOR COAGULANT COMPLEX
     Dosage: 10000 UNITS, EVERY DAY
     Route: 042
     Dates: start: 20160608, end: 20160608
  34. POLPRIL [Concomitant]
     Active Substance: RAMIPRIL
     Indication: HYPERTENSION
     Route: 048
     Dates: start: 20150730, end: 20160610
  35. FUROSEMIDE. [Concomitant]
     Active Substance: FUROSEMIDE
     Indication: OLIGURIA
     Dosage: 1 AMPULE
     Route: 042
     Dates: start: 20160610, end: 20160610
  36. FUROSEMIDE. [Concomitant]
     Active Substance: FUROSEMIDE
     Route: 042
     Dates: start: 20160620, end: 20160620
  37. ESPUMISAN [Concomitant]
     Active Substance: DIMETHICONE
     Indication: FLATULENCE
     Route: 048
     Dates: start: 20160614, end: 20160615
  38. ENCORTON [Concomitant]
     Active Substance: PREDNISONE
     Dosage: EVERY DAY
     Route: 048
     Dates: start: 20160621, end: 20160621
  39. PRAZOL (POLAND) [Concomitant]
     Active Substance: OMEPRAZOLE
     Dosage: EVERY DAY
     Route: 048
     Dates: start: 20160618
  40. AUGMENTIN [Concomitant]
     Active Substance: AMOXICILLIN\CLAVULANATE POTASSIUM
     Dosage: EVERY DAY
     Route: 042
     Dates: start: 20160617, end: 20160618
  41. FEIBA [Suspect]
     Active Substance: ANTI-INHIBITOR COAGULANT COMPLEX
     Indication: HAEMARTHROSIS
     Dosage: 10000 UNIT, EVERY DAY
     Route: 042
     Dates: start: 20160523, end: 20160523
  42. NORMAL SALINE [Concomitant]
     Active Substance: SODIUM CHLORIDE
     Indication: DEHYDRATION
     Dosage: 0.9% NORMAL SALINE SOLUTION
     Route: 042
     Dates: start: 20160610, end: 20160611
  43. PROCTOGLYVENOL [Concomitant]
     Dosage: EVERY DAY
     Route: 054
     Dates: start: 20160614, end: 20160615
  44. PROCTOGLYVENOL [Concomitant]
     Route: 054
     Dates: start: 20160617, end: 20160624
  45. FUROSEMIDE. [Concomitant]
     Active Substance: FUROSEMIDE
     Dosage: 2 AMPULES
     Route: 042
     Dates: start: 20160614, end: 20160615
  46. AUGMENTIN [Concomitant]
     Active Substance: AMOXICILLIN\CLAVULANATE POTASSIUM
     Indication: PROPHYLAXIS
     Route: 042
     Dates: start: 20160616, end: 20160616
  47. NOVOSEVEN [Concomitant]
     Active Substance: COAGULATION FACTOR VIIA RECOMBINANT HUMAN
     Indication: BACK PAIN
     Dosage: EVERY DAY
     Route: 042
     Dates: start: 20160615, end: 20160615
  48. NOVOSEVEN [Concomitant]
     Active Substance: COAGULATION FACTOR VIIA RECOMBINANT HUMAN
     Dosage: EVERY DAY
     Route: 042
     Dates: start: 20160624, end: 20160624
  49. FUROSEMIDE. [Concomitant]
     Active Substance: FUROSEMIDE
     Dosage: EVERY DAY
     Route: 048
     Dates: start: 20160621, end: 20160621
  50. PRAZOL (POLAND) [Concomitant]
     Active Substance: OMEPRAZOLE
     Indication: PROPHYLAXIS
     Route: 048
     Dates: start: 20160616, end: 20160617
  51. BLOOD TRANSFUSION [Concomitant]
     Active Substance: HUMAN RED BLOOD CELL
     Indication: ANAEMIA
     Dosage: 2 UNITS, EVERY DAY
     Route: 042
     Dates: start: 20160614, end: 20160614
  52. ENCORTON [Concomitant]
     Active Substance: PREDNISONE
     Dosage: EVERY DAY
     Route: 048
     Dates: start: 20160622, end: 20160622
  53. ENCORTON [Concomitant]
     Active Substance: PREDNISONE
     Dosage: EVERY DAY
     Route: 048
     Dates: start: 20160624, end: 20160624
  54. KETONAL (POLAND) [Concomitant]
     Indication: BACK PAIN
     Dosage: EVERY DAY
     Route: 048
     Dates: start: 20160609, end: 20160609
  55. MYDOCALM [Concomitant]
     Indication: BACK PAIN
     Dosage: EVERY DAY
     Route: 048
     Dates: start: 20160609, end: 20160609

REACTIONS (1)
  - Thrombotic microangiopathy [Recovered/Resolved]

NARRATIVE: CASE EVENT DATE: 20160609
